FAERS Safety Report 10074256 (Version 1)
Quarter: 2014Q2

REPORT INFORMATION
  Report Type: Spontaneous
  Country: US (occurrence: US)
  Receive Date: 20140411
  Receipt Date: 20140411
  Transmission Date: 20141212
  Serious: No
  Sender: FDA-Public Use
  Company Number: US-SA-2014SA007213

PATIENT
  Age: 4 Year
  Sex: Male

DRUGS (2)
  1. ALLEGRA [Suspect]
     Indication: HYPERSENSITIVITY
     Route: 048
  2. CLARITIN [Suspect]
     Route: 065

REACTIONS (2)
  - Gastric disorder [Recovered/Resolved]
  - Drug ineffective [Unknown]
